FAERS Safety Report 16047553 (Version 1)
Quarter: 2019Q1

REPORT INFORMATION
  Report Type: Spontaneous
  Country: GR (occurrence: GR)
  Receive Date: 20190307
  Receipt Date: 20190307
  Transmission Date: 20190418
  Serious: Yes (Other)
  Sender: FDA-Public Use
  Company Number: GR-JNJFOC-20190302373

PATIENT
  Sex: Female

DRUGS (3)
  1. DOXORUBICIN HYDROCHLORIDE. [Suspect]
     Active Substance: DOXORUBICIN HYDROCHLORIDE
     Indication: BREAST CANCER
     Route: 065
  2. DOCETAXEL. [Suspect]
     Active Substance: DOCETAXEL
     Indication: BREAST CANCER
     Route: 065
  3. CYCLOPHOSPHAMIDE. [Suspect]
     Active Substance: CYCLOPHOSPHAMIDE
     Indication: BREAST CANCER
     Route: 065

REACTIONS (24)
  - Neutropenia [Unknown]
  - Arthralgia [Unknown]
  - Thrombocytopenia [Unknown]
  - Infection [Unknown]
  - Nail toxicity [Unknown]
  - Oedema [Unknown]
  - Constipation [Unknown]
  - Leukopenia [Unknown]
  - Febrile neutropenia [Unknown]
  - Pain [Unknown]
  - Skin toxicity [Unknown]
  - Myalgia [Unknown]
  - Nausea [Unknown]
  - Diarrhoea [Unknown]
  - Rash [Unknown]
  - Conjunctivitis [Unknown]
  - Anaemia [Unknown]
  - Palmar-plantar erythrodysaesthesia syndrome [Unknown]
  - Hypersensitivity [Unknown]
  - Neurotoxicity [Unknown]
  - Cardiotoxicity [Unknown]
  - Vomiting [Unknown]
  - Mucosal inflammation [Unknown]
  - Fatigue [Unknown]
